FAERS Safety Report 5244993-1 (Version None)
Quarter: 2007Q1

REPORT INFORMATION
  Report Type: 
  Country: None (occurrence: None)
  Receive Date: 20070221
  Receipt Date: 20070221
  Transmission Date: 20070707
  Serious: Yes (Life-Threatening, Hospitalization)
  Sender: FDA-Public Use
  Company Number: None

PATIENT
  Age: 55 Year
  Sex: Female
  Weight: 55 kg

DRUGS (11)
  1. CYCLOPHOSPHAMIDE [Suspect]
     Indication: NON-SMALL CELL LUNG CANCER STAGE IV
  2. ALLOGENEIC LUNG CA/CD40L VACCINE [Suspect]
     Indication: LIVER DISORDER
  3. ALLOGENEIC LUNG CA/CD40L VACCINE [Suspect]
     Indication: METASTASES TO BONE
  4. ATRA (ALL TRANS RETINOIC ACID) [Suspect]
     Indication: LIVER DISORDER
  5. ATRA (ALL TRANS RETINOIC ACID) [Suspect]
     Indication: METASTASES TO BONE
  6. ATRA (ALL TRANS RETINOIC ACID) [Suspect]
     Indication: NON-SMALL CELL LUNG CANCER STAGE IV
  7. VICODIN [Concomitant]
  8. OXYCONTIN [Concomitant]
  9. FOLIC ACID [Concomitant]
  10. DUONEB [Concomitant]
  11. ARANESP [Concomitant]

REACTIONS (10)
  - HYPONATRAEMIA [None]
  - HYPOXIA [None]
  - MALIGNANT NEOPLASM PROGRESSION [None]
  - MENTAL STATUS CHANGES [None]
  - NAUSEA [None]
  - NON-SMALL CELL LUNG CANCER [None]
  - ORAL INTAKE REDUCED [None]
  - PLEURAL EFFUSION [None]
  - PNEUMONIA [None]
  - SUPERIOR VENA CAVAL OCCLUSION [None]
